FAERS Safety Report 15979635 (Version 2)
Quarter: 2019Q1

REPORT INFORMATION
  Report Type: Spontaneous
  Country: US (occurrence: US)
  Receive Date: 20190219
  Receipt Date: 20190226
  Transmission Date: 20190418
  Serious: No
  Sender: FDA-Public Use
  Company Number: US-PFIZER INC-2019069572

PATIENT
  Sex: Female

DRUGS (2)
  1. NORPACE [Suspect]
     Active Substance: DISOPYRAMIDE PHOSPHATE
     Dosage: 200 MG, TWICE A DAY
     Route: 048
  2. NORPACE [Suspect]
     Active Substance: DISOPYRAMIDE PHOSPHATE
     Indication: ATRIAL FIBRILLATION
     Dosage: 100 MG, 4X/DAY
     Route: 048

REACTIONS (3)
  - Product use in unapproved indication [Unknown]
  - Chest pain [Unknown]
  - Dizziness [Unknown]
